FAERS Safety Report 18612100 (Version 1)
Quarter: 2020Q4

REPORT INFORMATION
  Report Type: Spontaneous
  Country: CA (occurrence: CA)
  Receive Date: 20201214
  Receipt Date: 20201214
  Transmission Date: 20210114
  Serious: Yes (Other)
  Sender: FDA-Public Use
  Company Number: CA-BAYER-2020-269692

PATIENT
  Sex: Female

DRUGS (9)
  1. ALEVE [Suspect]
     Active Substance: NAPROXEN SODIUM
  2. AZATHIOPRINE. [Suspect]
     Active Substance: AZATHIOPRINE
  3. HYDROXYCHLOROQUINE SULFATE. [Suspect]
     Active Substance: HYDROXYCHLOROQUINE SULFATE
  4. METOPROLOL. [Suspect]
     Active Substance: METOPROLOL
  5. AZITHROMYCIN ANHYDROUS. [Suspect]
     Active Substance: AZITHROMYCIN ANHYDROUS
  6. XELJANZ [Suspect]
     Active Substance: TOFACITINIB CITRATE
  7. SULFASALAZINE. [Suspect]
     Active Substance: SULFASALAZINE
  8. HUMIRA [Suspect]
     Active Substance: ADALIMUMAB
  9. METHOTREXATE. [Suspect]
     Active Substance: METHOTREXATE

REACTIONS (11)
  - Drug ineffective [None]
  - Peripheral swelling [None]
  - Musculoskeletal stiffness [None]
  - Nausea [None]
  - Arthralgia [None]
  - Dizziness [None]
  - Swelling [None]
  - Joint stiffness [None]
  - Pain in extremity [None]
  - Rheumatoid arthritis [None]
  - Musculoskeletal pain [None]
